FAERS Safety Report 16249296 (Version 1)
Quarter: 2019Q2

REPORT INFORMATION
  Report Type: Spontaneous
  Country: FR (occurrence: FR)
  Receive Date: 20190429
  Receipt Date: 20190429
  Transmission Date: 20190711
  Serious: Yes (Death, Other)
  Sender: FDA-Public Use
  Company Number: FR-AUROBINDO-AUR-APL-2019-024336

PATIENT

DRUGS (5)
  1. MIANSERIN HYDROCHLORIDE [Suspect]
     Active Substance: MIANSERIN HYDROCHLORIDE
     Indication: WRONG PATIENT RECEIVED PRODUCT
     Dosage: 30 MILLIGRAM,IN TOTAL
     Route: 048
     Dates: start: 20190331, end: 20190331
  2. ANAFRANIL [Suspect]
     Active Substance: CLOMIPRAMINE HYDROCHLORIDE
     Indication: WRONG PATIENT RECEIVED PRODUCT
     Dosage: 1 DOSAGE FORM,IN TOTAL
     Route: 048
     Dates: start: 20190331, end: 20190331
  3. PANTOPRAZOLE [Concomitant]
     Active Substance: PANTOPRAZOLE
     Indication: WRONG PATIENT RECEIVED PRODUCT
     Dosage: 20 MILLIGRAM,IN TOTAL
     Route: 048
     Dates: start: 20190331, end: 20190331
  4. TAMSULOSINE [Concomitant]
     Active Substance: TAMSULOSIN HYDROCHLORIDE
     Indication: WRONG PATIENT RECEIVED PRODUCT
     Dosage: 0.4 MILLIGRAM,IN TOTAL
     Route: 048
     Dates: start: 20190331, end: 20190331
  5. CLOZAPINE. [Suspect]
     Active Substance: CLOZAPINE
     Indication: WRONG PATIENT RECEIVED PRODUCT
     Dosage: 200 MILLIGRAM, IN TOTAL
     Route: 048
     Dates: start: 20190331, end: 20190331

REACTIONS (4)
  - Wrong patient received product [Fatal]
  - Wrong product administered [Fatal]
  - Coma [Fatal]
  - Pneumonia aspiration [Fatal]

NARRATIVE: CASE EVENT DATE: 20190331
